FAERS Safety Report 24194909 (Version 2)
Quarter: 2024Q3

REPORT INFORMATION
  Report Type: Spontaneous
  Country: US (occurrence: US)
  Receive Date: 20240809
  Receipt Date: 20240813
  Transmission Date: 20241016
  Serious: No
  Sender: AZURITY PHARMACEUTICALS
  Company Number: US-AZURITY PHARMACEUTICALS, INC.-US-2024AZR000516

PATIENT
  Sex: Female

DRUGS (4)
  1. ZONISAMIDE [Suspect]
     Active Substance: ZONISAMIDE
     Indication: Product used for unknown indication
     Dosage: 200 MG
     Route: 065
  2. ZONISAMIDE [Suspect]
     Active Substance: ZONISAMIDE
     Dosage: 300 MG
     Route: 065
  3. ZONISAMIDE [Suspect]
     Active Substance: ZONISAMIDE
     Dosage: 15 MG
     Route: 065
  4. FYCOMPA [Concomitant]
     Active Substance: PERAMPANEL
     Indication: Product used for unknown indication
     Dosage: 1 DF, QD EVERY NIGHT AT BEDTIME
     Route: 048

REACTIONS (1)
  - Exposure during pregnancy [Unknown]
